FAERS Safety Report 14149490 (Version 1)
Quarter: 2017Q4

REPORT INFORMATION
  Report Type: Spontaneous
  Country: ES (occurrence: ES)
  Receive Date: 20171101
  Receipt Date: 20171101
  Transmission Date: 20180321
  Serious: Yes (Other)
  Sender: FDA-Public Use
  Company Number: ES-JNJFOC-20171031660

PATIENT

DRUGS (3)
  1. IBRUTINIB [Suspect]
     Active Substance: IBRUTINIB
     Indication: MANTLE CELL LYMPHOMA
     Route: 048
  2. IBRUTINIB [Suspect]
     Active Substance: IBRUTINIB
     Indication: WALDENSTROM^S MACROGLOBULINAEMIA
     Route: 048
  3. IBRUTINIB [Suspect]
     Active Substance: IBRUTINIB
     Indication: CHRONIC LYMPHOCYTIC LEUKAEMIA
     Route: 048

REACTIONS (14)
  - Haemothorax [Unknown]
  - Atrial fibrillation [Unknown]
  - Dermatosis [Unknown]
  - Hypertension [Unknown]
  - Intracranial pressure increased [Unknown]
  - Pneumonia [Unknown]
  - Thrombocytopenia [Unknown]
  - Asthenia [Unknown]
  - Sepsis [Unknown]
  - Diarrhoea [Unknown]
  - Infection [Unknown]
  - Mucosal haemorrhage [Unknown]
  - Pericardial haemorrhage [Unknown]
  - Neutropenia [Unknown]
